FAERS Safety Report 4619093-1 (Version None)
Quarter: 2005Q2

REPORT INFORMATION
  Report Type: 
  Country: None (occurrence: None)
  Receive Date: 20050321
  Receipt Date: 20041213
  Transmission Date: 20051028
  Serious: Yes (Other)
  Sender: FDA-Public Use
  Company Number: 2004-12-0786

PATIENT
  Sex: Male

DRUGS (3)
  1. PEG-INTRON [Suspect]
     Indication: HEPATITIS C
     Dosage: 150 MCG QWK SUBCUTANEOUS
     Route: 058
     Dates: start: 20030501, end: 20040401
  2. RIBAVIRIN [Suspect]
     Indication: HEPATITIS C
     Dosage: 1400 MG QD ORAL
     Route: 048
     Dates: start: 20030501, end: 20040401
  3. ADDERALL (DEXTROAMPHETAMINE/AMPHETAMINE) ORAL [Concomitant]

REACTIONS (5)
  - ALOPECIA [None]
  - ANGER [None]
  - DEPRESSION [None]
  - DRUG DEPENDENCE [None]
  - HAIR TEXTURE ABNORMAL [None]
